FAERS Safety Report 6525017-2 (Version None)
Quarter: 2010Q1

REPORT INFORMATION
  Report Type: 
  Country: None (occurrence: None)
  Receive Date: 20100104
  Receipt Date: 20091221
  Transmission Date: 20100710
  Serious: Yes (Other)
  Sender: FDA-Public Use
  Company Number: JP-PFIZER INC-2009314762

PATIENT
  Age: 82 Year
  Sex: Male

DRUGS (2)
  1. ZYVOX [Suspect]
     Indication: STAPHYLOCOCCAL INFECTION
     Dosage: 1200 MG/DAY
     Route: 048
     Dates: start: 20091218
  2. PAXIL [Suspect]
     Route: 048

REACTIONS (2)
  - DELIRIUM [None]
  - TREMOR [None]
